FAERS Safety Report 17650844 (Version 2)
Quarter: 2021Q4

REPORT INFORMATION
  Report Type: Report from Study
  Country: IE (occurrence: IE)
  Receive Date: 20200408
  Receipt Date: 20211222
  Transmission Date: 20220303
  Serious: Yes (Hospitalization)
  Sender: FDA-Public Use
  Company Number: IE-ELI_LILLY_AND_COMPANY-IE202002011592

PATIENT
  Sex: Female

DRUGS (1)
  1. TALTZ [Suspect]
     Active Substance: IXEKIZUMAB
     Indication: Product used for unknown indication
     Dosage: 160 MG, UNKNOWN
     Route: 065
     Dates: start: 20200107

REACTIONS (7)
  - Cellulitis [Not Recovered/Not Resolved]
  - Viral pharyngitis [Unknown]
  - Psoriasis [Unknown]
  - Arthralgia [Unknown]
  - Pharyngitis streptococcal [Not Recovered/Not Resolved]
  - Oropharyngeal pain [Not Recovered/Not Resolved]
  - Drug ineffective [Unknown]
